FAERS Safety Report 6210980-X (Version None)
Quarter: 2009Q2

REPORT INFORMATION
  Report Type: 
  Country: None (occurrence: None)
  Receive Date: 20090528
  Receipt Date: 20090528
  Transmission Date: 20091009
  Serious: No
  Sender: FDA-Public Use
  Company Number: None

PATIENT
  Age: 27 Year
  Sex: Female
  Weight: 81.6475 kg

DRUGS (2)
  1. YASMIN [Suspect]
     Indication: MIGRAINE
     Dosage: 1 PILL DAILY FOR 21 DAYS PO
     Route: 048
  2. YASMIN [Suspect]
     Indication: OVARIAN CYST
     Dosage: 1 PILL DAILY FOR 21 DAYS PO
     Route: 048

REACTIONS (1)
  - ALOPECIA [None]
